FAERS Safety Report 25644816 (Version 1)
Quarter: 2025Q3

REPORT INFORMATION
  Report Type: Spontaneous
  Country: CN (occurrence: CN)
  Receive Date: 20250805
  Receipt Date: 20250805
  Transmission Date: 20251020
  Serious: Yes (Other)
  Sender: BAYER HEALTHCARE PHARMACEUTICALS INC.
  Company Number: CN-BAYER-2025A103350

PATIENT
  Age: 80 Year
  Sex: Female
  Weight: 62 kg

DRUGS (4)
  1. GLUCOBAY [Suspect]
     Active Substance: ACARBOSE
     Indication: Type 2 diabetes mellitus
     Dosage: 100 MG, TID
     Route: 048
     Dates: start: 20250726, end: 20250730
  2. GLUCOBAY [Suspect]
     Active Substance: ACARBOSE
     Indication: Asthenia
  3. GLUCOBAY [Suspect]
     Active Substance: ACARBOSE
     Indication: Marasmus
  4. GLUCOBAY [Suspect]
     Active Substance: ACARBOSE
     Indication: Hypertension

REACTIONS (2)
  - Abdominal distension [Recovered/Resolved]
  - Hyperhidrosis [Recovered/Resolved]

NARRATIVE: CASE EVENT DATE: 20250729
